FAERS Safety Report 5378471-6 (Version None)
Quarter: 2007Q3

REPORT INFORMATION
  Report Type: 
  Country: None (occurrence: None)
  Receive Date: 20070705
  Receipt Date: 20070627
  Transmission Date: 20080115
  Serious: Yes (Death, Hospitalization)
  Sender: FDA-Public Use
  Company Number: KR-AVENTIS-200715771GDDC

PATIENT
  Age: 63 Year
  Sex: Male
  Weight: 71 kg

DRUGS (3)
  1. TAXOTERE [Suspect]
     Indication: NON-SMALL CELL LUNG CANCER
     Route: 042
     Dates: start: 20070215, end: 20070215
  2. ATORVASTAN [Concomitant]
     Indication: DEEP VEIN THROMBOSIS
     Route: 048
     Dates: start: 20070207, end: 20070310
  3. UNKNOWN DRUG [Concomitant]
     Indication: CONSTIPATION
     Route: 048
     Dates: start: 20070208, end: 20070310

REACTIONS (7)
  - BLOOD PRESSURE DECREASED [None]
  - CARDIAC FAILURE CONGESTIVE [None]
  - DYSPNOEA [None]
  - GENERALISED OEDEMA [None]
  - OLIGURIA [None]
  - PLEURAL EFFUSION [None]
  - PULMONARY OEDEMA [None]
